FAERS Safety Report 20366065 (Version 1)
Quarter: 2022Q1

REPORT INFORMATION
  Report Type: Other
  Country: US (occurrence: US)
  Receive Date: 20220123
  Receipt Date: 20220123
  Transmission Date: 20220423
  Serious: No
  Sender: FDA-Public Use
  Company Number: US-ACORDA-ACO_168197_2021

PATIENT

DRUGS (1)
  1. AMPYRA [Suspect]
     Active Substance: DALFAMPRIDINE
     Indication: Product used for unknown indication
     Dosage: 10 MILLIGRAM, BID
     Route: 048

REACTIONS (17)
  - Fall [Unknown]
  - General physical health deterioration [Unknown]
  - Dementia [Unknown]
  - Hallucination [Unknown]
  - Hallucination, auditory [Unknown]
  - Muscle spasms [Unknown]
  - Joint stiffness [None]
  - Memory impairment [Unknown]
  - Vision blurred [Unknown]
  - Mental impairment [Unknown]
  - Fine motor skill dysfunction [Unknown]
  - Taste disorder [Unknown]
  - Hypoacusis [Unknown]
  - Anxiety [Unknown]
  - Feeling abnormal [Unknown]
  - Product dose omission issue [Unknown]
  - Balance disorder [Unknown]
